FAERS Safety Report 13136275 (Version 1)
Quarter: 2017Q1

REPORT INFORMATION
  Report Type: Spontaneous
  Country: US (occurrence: US)
  Receive Date: 20170121
  Receipt Date: 20170121
  Transmission Date: 20170428
  Serious: No
  Sender: FDA-Public Use
  Company Number: US-CELGENEUS-USA-2017014237

PATIENT
  Sex: Female

DRUGS (1)
  1. OTEZLA [Suspect]
     Active Substance: APREMILAST
     Indication: PSORIASIS
     Dosage: 30 MG TWICE DAILY
     Route: 048

REACTIONS (6)
  - Muscle spasms [Unknown]
  - Headache [Unknown]
  - Gastrooesophageal reflux disease [Unknown]
  - Nausea [Unknown]
  - Diarrhoea [Unknown]
  - Menstrual disorder [Unknown]
